FAERS Safety Report 11790413 (Version 1)
Quarter: 2015Q4

REPORT INFORMATION
  Report Type: Spontaneous
  Country: US (occurrence: US)
  Receive Date: 20151201
  Receipt Date: 20151201
  Transmission Date: 20160305
  Serious: No
  Sender: FDA-Public Use
  Company Number: GXBR2015US002245

PATIENT
  Age: 57 Year
  Sex: Male
  Weight: 79.37 kg

DRUGS (1)
  1. FLUOCINOLONE ACETONIDE. [Suspect]
     Active Substance: FLUOCINOLONE ACETONIDE
     Indication: SEBORRHOEIC DERMATITIS
     Dosage: 0.025 %, UNK
     Route: 061

REACTIONS (1)
  - Expired product administered [Not Recovered/Not Resolved]
